FAERS Safety Report 6639207-1 (Version None)
Quarter: 2010Q1

REPORT INFORMATION
  Report Type: 
  Country: None (occurrence: None)
  Receive Date: 20100312
  Receipt Date: 20100304
  Transmission Date: 20100710
  Serious: Yes (Death)
  Sender: FDA-Public Use
  Company Number: 2009SP042655

PATIENT
  Age: 42 Year
  Sex: Male
  Weight: 75 kg

DRUGS (4)
  1. REMERON [Suspect]
     Indication: DEPRESSION
     Dosage: 30 MG;QD;PO
     Route: 048
     Dates: start: 20090911, end: 20091003
  2. MEILAX (ETHYL LOFLAZEPATE) [Suspect]
     Indication: DEPRESSION
     Dosage: 1 MG;PO ; 2 MG;ONCE;PO
     Route: 048
     Dates: start: 20090911, end: 20091002
  3. MEILAX (ETHYL LOFLAZEPATE) [Suspect]
     Indication: DEPRESSION
     Dosage: 1 MG;PO ; 2 MG;ONCE;PO
     Route: 048
     Dates: start: 20091003, end: 20091003
  4. ABILIT [Concomitant]

REACTIONS (1)
  - COMPLETED SUICIDE [None]
